FAERS Safety Report 14812649 (Version 2)
Quarter: 2018Q2

REPORT INFORMATION
  Report Type: Spontaneous
  Country: US (occurrence: US)
  Receive Date: 20180425
  Receipt Date: 20180601
  Transmission Date: 20180711
  Serious: Yes (Other)
  Sender: FDA-Public Use
  Company Number: US-GLAXOSMITHKLINE-US2018GSK072325

PATIENT
  Age: 52 Year
  Sex: Male

DRUGS (2)
  1. LAMICTAL [Suspect]
     Active Substance: LAMOTRIGINE
     Indication: FOCAL DYSCOGNITIVE SEIZURES
  2. LAMICTAL [Suspect]
     Active Substance: LAMOTRIGINE
     Indication: PARTIAL SEIZURES WITH SECONDARY GENERALISATION

REACTIONS (2)
  - Brain lobectomy [Unknown]
  - Adverse drug reaction [Unknown]

NARRATIVE: CASE EVENT DATE: 1997
